FAERS Safety Report 10239711 (Version 2)
Quarter: 2014Q2

REPORT INFORMATION
  Report Type: Spontaneous
  Country: US (occurrence: None)
  Receive Date: 20140612
  Receipt Date: 20140620
  Transmission Date: 20141212
  Serious: Yes (Other)
  Sender: FDA-Public Use
  Company Number: FK201402309

PATIENT
  Age: 67 Year
  Sex: Female

DRUGS (5)
  1. LEVOFLOXACIN (MANUFACTURER UNKNOWN) (LEVOFLOXACIN) (LEVOFLOXACIN) [Suspect]
     Indication: ENDOPHTHALMITIS
     Dosage: 2 W, INTRAVENOUS (NOT OTHERWISE SPECIFIED)?
     Route: 042
  2. CEFTAZIDIME (CEFTAZIDIME) [Concomitant]
  3. VANCOMYCIN (VANCOMYCIN) [Concomitant]
  4. PREDNISONE (PREDNISONE) [Concomitant]
  5. MOXIFLOXACIN OPHTALMIC SOLUTION (MOXIFLOXACIN) [Concomitant]

REACTIONS (4)
  - Drug-induced liver injury [None]
  - Cholestasis [None]
  - Hepatic fibrosis [None]
  - Vanishing bile duct syndrome [None]
